FAERS Safety Report 4462376-9 (Version None)
Quarter: 2004Q3

REPORT INFORMATION
  Report Type: 
  Country: None (occurrence: None)
  Receive Date: 20040923
  Receipt Date: 20040910
  Transmission Date: 20050211
  Serious: Yes (Hospitalization)
  Sender: FDA-Public Use
  Company Number: 6010516

PATIENT
  Age: 57 Year
  Sex: Male

DRUGS (8)
  1. CARDENSIEL (TABLETS) (BISOPROLOL) [Suspect]
     Indication: CARDIAC FAILURE
     Dosage: ORAL
     Route: 048
     Dates: start: 20040710
  2. LASIX [Suspect]
     Indication: CARDIAC FAILURE
     Dosage: ORAL
     Route: 048
     Dates: start: 20040710
  3. ALDACTONE [Suspect]
     Indication: CARDIAC FAILURE
     Dosage: ORAL
     Route: 048
     Dates: start: 20040710, end: 20040804
  4. KARDEGIC (POWDER) (ACETYLSALICYLATE LYSINE) [Suspect]
     Indication: CARDIAC FAILURE
     Dosage: ORAL
     Route: 048
     Dates: start: 20040710
  5. COVERSYL                 ([PERINDOPRIL) [Suspect]
     Indication: CARDIAC FAILURE
     Dosage: ORAL
     Route: 048
     Dates: start: 20040710, end: 20040804
  6. CORDARONE [Suspect]
     Indication: CARDIAC FAILURE
     Dosage: 200 MG ORAL
     Route: 048
     Dates: start: 20040710, end: 20040817
  7. GLUCOPHAGE [Concomitant]
  8. DIAMICRON (TABLETS) (GLICLAZIDE) [Concomitant]

REACTIONS (2)
  - DRUG INEFFECTIVE [None]
  - PEMPHIGOID [None]
